FAERS Safety Report 18765815 (Version 3)
Quarter: 2021Q3

REPORT INFORMATION
  Report Type: Report from Study
  Country: BE (occurrence: BE)
  Receive Date: 20210120
  Receipt Date: 20210924
  Transmission Date: 20211014
  Serious: Yes (Hospitalization)
  Sender: FDA-Public Use
  Company Number: BE-EMD SERONO-9212528

PATIENT
  Sex: Female

DRUGS (1)
  1. REBIF [Suspect]
     Active Substance: INTERFERON BETA-1A
     Indication: PRODUCT USED FOR UNKNOWN INDICATION
     Route: 058
     Dates: start: 20140716

REACTIONS (7)
  - Metastases to lymph nodes [Unknown]
  - Vaginal haemorrhage [Unknown]
  - Intraductal proliferative breast lesion [Unknown]
  - Post procedural contusion [Unknown]
  - Stomatitis [Unknown]
  - Myalgia [Unknown]
  - Nausea [Unknown]
